FAERS Safety Report 18687065 (Version 1)
Quarter: 2020Q4

REPORT INFORMATION
  Report Type: Spontaneous
  Country: US (occurrence: US)
  Receive Date: 20201231
  Receipt Date: 20201231
  Transmission Date: 20210114
  Serious: No
  Sender: FDA-Public Use
  Company Number: US-SA-2020SA376134

PATIENT

DRUGS (21)
  1. VENTOLIN HFA [Concomitant]
     Active Substance: ALBUTEROL SULFATE
  2. COLACE [Concomitant]
     Active Substance: DOCUSATE SODIUM
  3. TYLENOL [Concomitant]
     Active Substance: ACETAMINOPHEN
  4. SENNA [Concomitant]
     Active Substance: SENNA LEAF\SENNOSIDES\SENNOSIDES A AND B
  5. PREVACID [Concomitant]
     Active Substance: LANSOPRAZOLE
  6. NOVOLOG [Concomitant]
     Active Substance: INSULIN ASPART
  7. BROVANA [Concomitant]
     Active Substance: ARFORMOTEROL TARTRATE
  8. ASPIRIN 81 [Concomitant]
     Active Substance: ASPIRIN
  9. SINGULAIR [Concomitant]
     Active Substance: MONTELUKAST SODIUM
  10. CLONIDINE HCL [Concomitant]
     Active Substance: CLONIDINE HYDROCHLORIDE
  11. DUPIXENT [Suspect]
     Active Substance: DUPILUMAB
     Indication: ASTHMA
     Dosage: 300 MG, QOW (1 PEN)
     Route: 058
     Dates: start: 202011
  12. ATROVENT HFA [Concomitant]
     Active Substance: IPRATROPIUM BROMIDE
  13. RHINOCORT ALLERGY [Concomitant]
     Active Substance: BUDESONIDE
  14. VITAMIN D [COLECALCIFEROL] [Concomitant]
     Active Substance: CHOLECALCIFEROL
  15. LEVEMIR [Concomitant]
     Active Substance: INSULIN DETEMIR
  16. VITAMINS NOS [Concomitant]
     Active Substance: VITAMINS
  17. IRON [Concomitant]
     Active Substance: IRON
  18. HYDROCHLOROTHIAZIDE. [Concomitant]
     Active Substance: HYDROCHLOROTHIAZIDE
  19. ALBUTEROL SULFATE. [Concomitant]
     Active Substance: ALBUTEROL SULFATE
  20. DIABETIC TUSSIN EXPECTORANT [Concomitant]
     Active Substance: GUAIFENESIN
  21. ZYRTEC [Concomitant]
     Active Substance: CETIRIZINE HYDROCHLORIDE

REACTIONS (1)
  - Pruritus [Unknown]

NARRATIVE: CASE EVENT DATE: 2020
